FAERS Safety Report 19261498 (Version 2)
Quarter: 2021Q2

REPORT INFORMATION
  Report Type: Report from Study
  Country: MX (occurrence: MX)
  Receive Date: 20210515
  Receipt Date: 20210531
  Transmission Date: 20210717
  Serious: Yes (Other)
  Sender: FDA-Public Use
  Company Number: NVSC2021MX102703

PATIENT
  Sex: Female
  Weight: 79 kg

DRUGS (4)
  1. PARACETAMOL [Concomitant]
     Active Substance: ACETAMINOPHEN
     Indication: ARTHRALGIA
     Dosage: 1 DF, QD (STARTED 1 YEAR AGO)
     Route: 048
  2. CORNEREGEL [Concomitant]
     Active Substance: DEXPANTHENOL
     Indication: EYE LUBRICATION THERAPY
     Dosage: 1 DF, Q12H (STARTED 15 YEARS AGO)
     Route: 047
  3. HYABAK [Concomitant]
     Active Substance: HYALURONATE SODIUM
     Indication: EYE LUBRICATION THERAPY
     Dosage: 1 DF (DROP), Q3H (STARTED 15 YEARS AGO)
     Route: 047
  4. CO?DIOVAN [Suspect]
     Active Substance: HYDROCHLOROTHIAZIDE\VALSARTAN
     Indication: HYPERTENSION
     Dosage: 1 DF (160/12.5 MG), QD
     Route: 048
     Dates: start: 2011, end: 20210424

REACTIONS (10)
  - Corneal graft rejection [Recovered/Resolved with Sequelae]
  - Gastrointestinal disorder [Unknown]
  - Wrong product administered [Unknown]
  - Gastrointestinal disorder [Recovered/Resolved with Sequelae]
  - Visual impairment [Unknown]
  - Drug ineffective [Unknown]
  - Peritonitis [Recovered/Resolved with Sequelae]
  - Blood pressure increased [Unknown]
  - Glaucoma [Not Recovered/Not Resolved]
  - Headache [Unknown]

NARRATIVE: CASE EVENT DATE: 2015
